FAERS Safety Report 6774773-7 (Version None)
Quarter: 2010Q2

REPORT INFORMATION
  Report Type: 
  Country: None (occurrence: None)
  Receive Date: 20100616
  Receipt Date: 20100616
  Transmission Date: 20101027
  Serious: Yes (Life-Threatening, Hospitalization, Disabling)
  Sender: FDA-Public Use
  Company Number: None

PATIENT
  Sex: Female
  Weight: 59.6 kg

DRUGS (3)
  1. RISPERDAL [Suspect]
     Indication: BIPOLAR DISORDER
     Dosage: 2MG ONCE DAILY PO
     Route: 048
     Dates: start: 20100504, end: 20100530
  2. CLOZAPINE [Suspect]
     Indication: BIPOLAR DISORDER
     Dosage: 50MG/125MG AM BEDTIME PO
     Route: 048
     Dates: start: 20100504, end: 20100530
  3. LITHIUM [Concomitant]

REACTIONS (1)
  - NEUROLEPTIC MALIGNANT SYNDROME [None]
